FAERS Safety Report 7117201-4 (Version None)
Quarter: 2010Q4

REPORT INFORMATION
  Report Type: 
  Country: None (occurrence: None)
  Receive Date: 20101122
  Receipt Date: 20101112
  Transmission Date: 20110411
  Serious: Yes (Hospitalization)
  Sender: FDA-Public Use
  Company Number: PHHY2010US77321

PATIENT
  Sex: Male

DRUGS (2)
  1. EXTAVIA [Suspect]
     Indication: MULTIPLE SCLEROSIS
     Dosage: 0.25 MG, QOD
     Route: 058
     Dates: start: 20100130
  2. PLAVIX [Concomitant]
     Dosage: UNK

REACTIONS (5)
  - BENIGN PROSTATIC HYPERPLASIA [None]
  - BIOPSY PROSTATE ABNORMAL [None]
  - BLOOD URINE PRESENT [None]
  - DRUG DOSE OMISSION [None]
  - URINARY TRACT INFECTION [None]
